FAERS Safety Report 21590362 (Version 1)
Quarter: 2022Q4

REPORT INFORMATION
  Report Type: Report from Study
  Country: US (occurrence: US)
  Receive Date: 20221114
  Receipt Date: 20221114
  Transmission Date: 20230113
  Serious: No
  Sender: FDA-Public Use
  Company Number: US-ABBVIE-4162984

PATIENT
  Sex: Female

DRUGS (5)
  1. RINVOQ [Suspect]
     Active Substance: UPADACITINIB
     Indication: Ankylosing spondylitis
     Route: 048
     Dates: start: 20220804, end: 2022
  2. COSENTYX [Concomitant]
     Active Substance: SECUKINUMAB
     Indication: Product used for unknown indication
     Dosage: COSENTYX 150 MG/ML PEN (2=1 BX)
  3. Bupropion hcl TAB 300MG XL [Concomitant]
     Indication: Product used for unknown indication
  4. LEVOTHYROXIN TAB 75MCG [Concomitant]
     Indication: Product used for unknown indication
     Dosage: LEVOTHYROXIN TAB 75MCG
  5. ENBREL [Concomitant]
     Active Substance: ETANERCEPT
     Indication: Product used for unknown indication
     Dosage: ENBREL 50MG/ML SURECLICK (4=4)

REACTIONS (3)
  - Musculoskeletal stiffness [Unknown]
  - Ankylosing spondylitis [Not Recovered/Not Resolved]
  - Fatigue [Unknown]

NARRATIVE: CASE EVENT DATE: 20220101
